FAERS Safety Report 25107657 (Version 1)
Quarter: 2025Q1

REPORT INFORMATION
  Report Type: Report from Study
  Country: EG (occurrence: EG)
  Receive Date: 20250322
  Receipt Date: 20250322
  Transmission Date: 20250409
  Serious: Yes (Hospitalization)
  Sender: ABBVIE
  Company Number: EG-ABBVIE-6182412

PATIENT
  Sex: Female

DRUGS (2)
  1. HUMIRA [Suspect]
     Active Substance: ADALIMUMAB
     Indication: Rheumatoid arthritis
     Route: 058
     Dates: start: 2023
  2. CORTISONE [Concomitant]
     Active Substance: CORTISONE
     Indication: Product used for unknown indication

REACTIONS (7)
  - Feeding disorder [Recovered/Resolved]
  - Colitis ulcerative [Recovered/Resolved]
  - Ascites [Unknown]
  - Drug ineffective [Unknown]
  - Haematemesis [Recovered/Resolved]
  - Gastric ulcer [Recovered/Resolved]
  - Faecal calprotectin increased [Unknown]
